FAERS Safety Report 9394963 (Version 1)
Quarter: 2013Q3

REPORT INFORMATION
  Report Type: Spontaneous
  Country: GB (occurrence: None)
  Receive Date: 20130705
  Receipt Date: 20130705
  Transmission Date: 20140515
  Serious: Yes (Disabling)
  Sender: FDA-Public Use
  Company Number: GER/UKI/13/0030355

PATIENT
  Age: 69 Year
  Sex: Male
  Weight: 80 kg

DRUGS (2)
  1. OMEPRAZOLE (OMEPRAZOLE) [Suspect]
     Indication: PRODUCT USED FOR UNKNOWN INDICATION
  2. VORICONOZOLE [Suspect]
     Indication: INTERVERTEBRAL DISCITIS
     Dosage: 320MG, 2 IN 1 D, INTRAVENOUS
     Route: 042
     Dates: start: 20130510

REACTIONS (2)
  - Drug interaction [None]
  - Drug level increased [None]
